FAERS Safety Report 9742869 (Version 2)
Quarter: 2013Q4

REPORT INFORMATION
  Report Type: Spontaneous
  Country: DE (occurrence: DE)
  Receive Date: 20131210
  Receipt Date: 20131210
  Transmission Date: 20140711
  Serious: Yes (Death, Other)
  Sender: FDA-Public Use
  Company Number: DE-CELGENEUS-062-POMAL-13104908

PATIENT
  Age: 77 Year
  Sex: Male
  Weight: 70 kg

DRUGS (15)
  1. IMNOVID [Suspect]
     Indication: PLASMA CELL MYELOMA
     Dosage: 4 MILLIGRAM
     Route: 048
     Dates: start: 20130905, end: 20130917
  2. IMNOVID [Suspect]
     Dosage: 2 MILLIGRAM
     Route: 048
     Dates: start: 20131009, end: 20131016
  3. IMNOVID [Suspect]
     Dosage: 2 MILLIGRAM
     Route: 048
     Dates: start: 20131017, end: 20131025
  4. FORTECORTIN [Concomitant]
     Indication: PLASMA CELL MYELOMA
     Dosage: 20 MILLIGRAM
     Route: 065
     Dates: start: 20130826
  5. FORTECORTIN [Concomitant]
     Dosage: 20 MILLIGRAM
     Route: 065
     Dates: end: 20130825
  6. PANTOZOL [Concomitant]
     Indication: GASTRITIS PROPHYLAXIS
     Dosage: 40 MILLIGRAM
     Route: 048
     Dates: end: 20131022
  7. IBANDRONATE [Concomitant]
     Indication: OSTEOLYSIS
     Dosage: 6 MILLIGRAM
     Route: 041
  8. IBANDRONATE [Concomitant]
     Indication: PROPHYLAXIS
  9. CLEXANE [Concomitant]
     Indication: THROMBOSIS PROPHYLAXIS
     Dosage: 20 MILLIGRAM
     Route: 058
  10. COTRIM FORTE [Concomitant]
     Indication: ANTIFUNGAL PROPHYLAXIS
     Route: 048
     Dates: start: 20130425
  11. ACICLOVIR [Concomitant]
     Indication: PROPHYLAXIS
     Dosage: 1200
     Route: 065
     Dates: end: 20131022
  12. OTHER THERAPEUTIC AGENT [Concomitant]
     Indication: ANAEMIA
     Route: 065
     Dates: end: 20131022
  13. RED BLOOD CELLS [Concomitant]
     Indication: ANAEMIA
     Route: 065
     Dates: start: 20090108, end: 20090610
  14. RED BLOOD CELLS [Concomitant]
     Route: 065
     Dates: start: 20130926, end: 20130926
  15. RED BLOOD CELLS [Concomitant]
     Dosage: 2 IU (INTERNATIONAL UNIT)
     Route: 065
     Dates: start: 20110128, end: 20110128

REACTIONS (4)
  - Thrombocytopenia [Recovered/Resolved]
  - Thrombocytopenia [Unknown]
  - Cachexia [Fatal]
  - Plasma cell myeloma [Fatal]
